FAERS Safety Report 7580166-5 (Version None)
Quarter: 2011Q2

REPORT INFORMATION
  Report Type: 
  Country: None (occurrence: None)
  Receive Date: 20110629
  Receipt Date: 20110609
  Transmission Date: 20111010
  Serious: Yes (Hospitalization, Other)
  Sender: FDA-Public Use
  Company Number: US-BAYER-2011-004032

PATIENT
  Age: 42 Year
  Sex: Female

DRUGS (12)
  1. FLEXERIL [Concomitant]
     Dosage: 20 MG, QD
     Route: 048
  2. IMITREX [Concomitant]
     Indication: MIGRAINE
     Dosage: UNK
     Dates: start: 20020101, end: 20090101
  3. NITROFURANT MACRO [Concomitant]
     Dosage: 100 MG, UNK
     Route: 048
  4. METHYLPREDNISOLONE [Concomitant]
     Dosage: 4 MG, UNK
     Route: 048
     Dates: start: 20091202
  5. LYRICA [Concomitant]
     Indication: PARAESTHESIA
     Dosage: 150 MG, UNK
     Route: 048
     Dates: start: 20060101
  6. MOTRIN [Concomitant]
     Indication: PAIN
     Dosage: 200 MG, UNK
     Route: 048
  7. ZYRTEC [Concomitant]
     Route: 048
  8. HYDROMORPHONE HCL [Concomitant]
     Dosage: 2 MG, UNK
     Route: 048
  9. SUMATRIPTAN SUCCINATE [Concomitant]
     Dosage: 100 MG, UNK
     Route: 048
  10. YAZ [Suspect]
     Indication: CONTRACEPTION
     Dosage: UNK
     Dates: start: 20070101, end: 20090101
  11. YAZ [Suspect]
     Indication: PREMENSTRUAL SYNDROME
     Dosage: UNK
     Dates: start: 20070101, end: 20090101
  12. AVAPRO [Concomitant]
     Indication: HYPERTENSION
     Dosage: 300 MG, UNK
     Route: 048
     Dates: start: 20080101

REACTIONS (8)
  - PAIN [None]
  - DEEP VEIN THROMBOSIS [None]
  - INJURY [None]
  - GENERAL PHYSICAL HEALTH DETERIORATION [None]
  - CHOLELITHIASIS [None]
  - MOBILITY DECREASED [None]
  - ANXIETY [None]
  - EMOTIONAL DISTRESS [None]
